FAERS Safety Report 11536813 (Version 2)
Quarter: 2015Q4

REPORT INFORMATION
  Report Type: Report from Study
  Country: US (occurrence: US)
  Receive Date: 20150922
  Receipt Date: 20151015
  Transmission Date: 20160304
  Serious: No
  Sender: FDA-Public Use
  Company Number: US-AMGEN-USASL2015097028

PATIENT
  Age: 50 Year
  Sex: Female

DRUGS (1)
  1. ENBREL [Suspect]
     Active Substance: ETANERCEPT
     Indication: PSORIATIC ARTHROPATHY
     Dosage: 50 MG, QWK
     Route: 065
     Dates: start: 20150721, end: 20151011

REACTIONS (9)
  - Rash erythematous [Unknown]
  - Injection site pain [Unknown]
  - Sleep disorder [Unknown]
  - Rash maculo-papular [Unknown]
  - Injection site irritation [Unknown]
  - Injection site urticaria [Unknown]
  - Injection site erythema [Unknown]
  - Skin disorder [Unknown]
  - Skin exfoliation [Unknown]

NARRATIVE: CASE EVENT DATE: 2015
